FAERS Safety Report 10646746 (Version 1)
Quarter: 2014Q4

REPORT INFORMATION
  Report Type: Spontaneous
  Country: BR (occurrence: BR)
  Receive Date: 20141211
  Receipt Date: 20141211
  Transmission Date: 20150529
  Serious: Yes (Death, Hospitalization, Other)
  Sender: FDA-Public Use
  Company Number: BR-PFIZER INC-2014338430

PATIENT
  Age: 55 Year
  Sex: Male
  Weight: 60 kg

DRUGS (3)
  1. MAREVAN [Suspect]
     Active Substance: WARFARIN SODIUM
     Indication: THROMBOSIS
     Dosage: ONE TABLET (5 MG), DAILY
     Dates: start: 2014
  2. DAFLON [Suspect]
     Active Substance: DIOSMIN\HESPERIDIN
     Indication: THROMBOSIS
     Dosage: 1 TABLET (^1000^, UNSPECIFIED UNIT), DAILY
     Dates: start: 2014
  3. LYRICA [Suspect]
     Active Substance: PREGABALIN
     Indication: PAIN
     Dosage: UNK
     Route: 048
     Dates: start: 2013, end: 2014

REACTIONS (8)
  - Hepatic neoplasm [Unknown]
  - Gastrointestinal haemorrhage [Unknown]
  - Drug ineffective [Unknown]
  - Neoplasm malignant [Fatal]
  - Disease progression [Fatal]
  - Mouth haemorrhage [Unknown]
  - Asthenia [Unknown]
  - Coma [Unknown]

NARRATIVE: CASE EVENT DATE: 2014
